FAERS Safety Report 23377785 (Version 1)
Quarter: 2024Q1

REPORT INFORMATION
  Report Type: Spontaneous
  Country: CN (occurrence: CN)
  Receive Date: 20240108
  Receipt Date: 20240108
  Transmission Date: 20240410
  Serious: Yes (Other)
  Sender: FDA-Public Use
  Company Number: CN-SHANGHAI JUNSHI BIOSCIENCES CO., LTD.-CN2023008958

PATIENT

DRUGS (2)
  1. TORIPALIMAB [Suspect]
     Active Substance: TORIPALIMAB
     Indication: Nasopharyngeal cancer
     Dosage: 240 MG
     Route: 041
     Dates: start: 20231125, end: 20231125
  2. CAPECITABINE [Suspect]
     Active Substance: CAPECITABINE
     Indication: Nasopharyngeal cancer
     Dosage: 1500 MG, BID
     Route: 048
     Dates: start: 20231125, end: 20231125

REACTIONS (1)
  - White blood cell count decreased [Recovered/Resolved]

NARRATIVE: CASE EVENT DATE: 20231215
